FAERS Safety Report 8394937-9 (Version None)
Quarter: 2012Q2

REPORT INFORMATION
  Report Type: 
  Country: None (occurrence: None)
  Receive Date: 20120530
  Receipt Date: 20110930
  Transmission Date: 20120825
  Serious: Yes (Hospitalization)
  Sender: FDA-Public Use
  Company Number: US-GLAXOSMITHKLINE-A0947249A

PATIENT
  Age: 55 Year
  Sex: Female

DRUGS (1)
  1. FLOLAN [Suspect]
     Dosage: 78NGKM UNKNOWN
     Route: 065
     Dates: start: 20100311

REACTIONS (1)
  - OESOPHAGEAL HAEMORRHAGE [None]
